FAERS Safety Report 10694649 (Version 2)
Quarter: 2015Q1

REPORT INFORMATION
  Report Type: Spontaneous
  Country: US (occurrence: US)
  Receive Date: 20150107
  Receipt Date: 20150107
  Transmission Date: 20150721
  Serious: Yes (Hospitalization, Other)
  Sender: FDA-Public Use
  Company Number: US-SANOFI-AVENTIS-2011SA061157

PATIENT
  Age: 65 Year
  Sex: Female
  Weight: 99.8 kg

DRUGS (18)
  1. METHOTREXATE [Concomitant]
     Active Substance: METHOTREXATE
  2. FOLIC ACID. [Concomitant]
     Active Substance: FOLIC ACID
  3. LIPITOR [Concomitant]
     Active Substance: ATORVASTATIN CALCIUM
  4. PLAQUENIL [Concomitant]
     Active Substance: HYDROXYCHLOROQUINE SULFATE
  5. ALBUTEROL. [Concomitant]
     Active Substance: ALBUTEROL
     Dosage: PRN
  6. FISH OIL [Concomitant]
     Active Substance: FISH OIL
  7. TRAMADOL [Concomitant]
     Active Substance: TRAMADOL
     Indication: PAIN
  8. FLEXERIL [Concomitant]
     Active Substance: CYCLOBENZAPRINE HYDROCHLORIDE
  9. PREDNISONE. [Concomitant]
     Active Substance: PREDNISONE
  10. PREDNISONE. [Concomitant]
     Active Substance: PREDNISONE
  11. SINGULAIR [Concomitant]
     Active Substance: MONTELUKAST SODIUM
  12. ADVAIR HFA [Concomitant]
     Active Substance: FLUTICASONE PROPIONATE\SALMETEROL XINAFOATE
  13. LASIX [Concomitant]
     Active Substance: FUROSEMIDE
  14. CALCIUM [Concomitant]
     Active Substance: CALCIUM
  15. PLAVIX [Suspect]
     Active Substance: CLOPIDOGREL BISULFATE
     Indication: TRANSIENT ISCHAEMIC ATTACK
     Route: 065
     Dates: start: 2002
  16. HUMALOG [Concomitant]
     Active Substance: INSULIN LISPRO
     Dosage: 75/25
  17. TYLENOL [Concomitant]
     Active Substance: ACETAMINOPHEN
     Indication: PAIN
  18. ATENOLOL. [Concomitant]
     Active Substance: ATENOLOL

REACTIONS (4)
  - Gastrointestinal haemorrhage [Unknown]
  - Asthenia [Unknown]
  - Blood iron decreased [Unknown]
  - Malaise [Unknown]

NARRATIVE: CASE EVENT DATE: 2007
